FAERS Safety Report 25841006 (Version 1)
Quarter: 2025Q3

REPORT INFORMATION
  Report Type: Spontaneous
  Country: US (occurrence: US)
  Receive Date: 20250924
  Receipt Date: 20250924
  Transmission Date: 20251021
  Serious: Yes (Other)
  Sender: PFIZER
  Company Number: US-PFIZER INC-202500187650

PATIENT
  Age: 64 Year
  Sex: Male

DRUGS (17)
  1. TALZENNA [Suspect]
     Active Substance: TALAZOPARIB TOSYLATE
     Dosage: 0.5 MG CAPSULE DAILY PO
     Route: 048
     Dates: start: 20250605, end: 202509
  2. TALZENNA [Suspect]
     Active Substance: TALAZOPARIB TOSYLATE
     Route: 048
     Dates: start: 202509
  3. XTANDI [Suspect]
     Active Substance: ENZALUTAMIDE
     Dates: end: 202509
  4. XTANDI [Suspect]
     Active Substance: ENZALUTAMIDE
     Dates: start: 202509
  5. VITAMIN D3 [Concomitant]
     Active Substance: CHOLECALCIFEROL
  6. VITAMIN C [Concomitant]
     Active Substance: ASCORBIC ACID
  7. IBUPROFEN [Concomitant]
     Active Substance: IBUPROFEN
  8. OMEPRAZOLE [Concomitant]
     Active Substance: OMEPRAZOLE
  9. MUPIROCIN [Concomitant]
     Active Substance: MUPIROCIN
  10. DEXAMETHASONE [Concomitant]
     Active Substance: DEXAMETHASONE
  11. TAMSULOSIN [Concomitant]
     Active Substance: TAMSULOSIN
  12. SENNA LEAF [Concomitant]
     Active Substance: SENNA LEAF
  13. OXYCODONE AND ACETAMINOPHEN [Concomitant]
     Active Substance: ACETAMINOPHEN\OXYCODONE HYDROCHLORIDE
  14. CALCIUM CARBONATE [Concomitant]
     Active Substance: CALCIUM CARBONATE
  15. METOPROLOL TARTRATE [Concomitant]
     Active Substance: METOPROLOL TARTRATE
  16. TRAMADOL [Concomitant]
     Active Substance: TRAMADOL
  17. ONDANSETRON [Concomitant]
     Active Substance: ONDANSETRON

REACTIONS (2)
  - Anaemia [Not Recovered/Not Resolved]
  - Fatigue [Unknown]

NARRATIVE: CASE EVENT DATE: 20250101
